FAERS Safety Report 17551035 (Version 1)
Quarter: 2020Q1

REPORT INFORMATION
  Report Type: Spontaneous
  Country: ES (occurrence: ES)
  Receive Date: 20200317
  Receipt Date: 20200317
  Transmission Date: 20200409
  Serious: Yes (Other)
  Sender: FDA-Public Use
  Company Number: ES-ASTRAZENECA-2020SE35851

PATIENT
  Age: 45 Year
  Sex: Female

DRUGS (6)
  1. CELLCEPT [Suspect]
     Active Substance: MYCOPHENOLATE MOFETIL\MYCOPHENOLATE MOFETIL HYDROCHLORIDE
     Indication: LUNG TRANSPLANT
     Dosage: 1 G/5 ML, 1000MG, EVERY 12 HOURS
     Route: 048
     Dates: start: 20200120, end: 20200205
  2. PARACETAMOL (12A) [Suspect]
     Active Substance: ACETAMINOPHEN
     Route: 042
     Dates: start: 20200121, end: 20200204
  3. QUETIAPINE (1136A) [Suspect]
     Active Substance: QUETIAPINE
     Route: 048
     Dates: start: 20200122, end: 20200207
  4. AMOXICILLIN + CLAVULANIC ACID [Suspect]
     Active Substance: AMOXICILLIN\CLAVULANIC ACID
     Route: 042
     Dates: start: 20200116, end: 20200121
  5. HYDROCHLORIDE CLONIDINE (636CH) [Suspect]
     Active Substance: CLONIDINE HYDROCHLORIDE
     Route: 042
     Dates: start: 20200125, end: 20200202
  6. METAMIZOLE (111A) [Suspect]
     Active Substance: METAMIZOLE
     Route: 042
     Dates: start: 20200121, end: 20200201

REACTIONS (1)
  - Mixed liver injury [Recovering/Resolving]

NARRATIVE: CASE EVENT DATE: 20200129
